FAERS Safety Report 5991421-4 (Version None)
Quarter: 2008Q4

REPORT INFORMATION
  Report Type: 
  Country: None (occurrence: None)
  Receive Date: 20081211
  Receipt Date: 20081203
  Transmission Date: 20090506
  Serious: Yes (Other)
  Sender: FDA-Public Use
  Company Number: GB-ROCHE-601385

PATIENT
  Sex: Female

DRUGS (4)
  1. ORLISTAT [Suspect]
     Indication: OBESITY
     Route: 048
     Dates: start: 20080402
  2. LOZAP [Concomitant]
     Indication: HIATUS HERNIA
     Dosage: REPORTED AS LOZAC.
     Route: 048
  3. SEREVENT [Concomitant]
     Indication: ASTHMA
     Dosage: REPORTED AS SELEVENT, DOSE: 25 MCG TWICE IN THE MORNING AND TWICE IN THE EVENING.
     Route: 048
  4. ALBUTEROL SULFATE [Concomitant]
     Indication: ASTHMA
     Dosage: 100 MCG TWICE IN THE MORNING AND TWICE IN THE EVENING.
     Route: 048

REACTIONS (1)
  - HEPATIC NEOPLASM MALIGNANT [None]
